FAERS Safety Report 7291867-0 (Version None)
Quarter: 2011Q1

REPORT INFORMATION
  Report Type: 
  Country: None (occurrence: None)
  Receive Date: 20110214
  Receipt Date: 20110208
  Transmission Date: 20110831
  Serious: Yes (Hospitalization)
  Sender: FDA-Public Use
  Company Number: US-ABBOTT-11P-163-0703784-00

PATIENT
  Sex: Female
  Weight: 63.56 kg

DRUGS (3)
  1. HUMIRA [Suspect]
     Indication: CROHN'S DISEASE
     Dates: start: 20090201, end: 20100801
  2. HUMIRA [Suspect]
     Indication: ANKYLOSING SPONDYLITIS
     Dates: start: 20100801, end: 20110124
  3. HUMIRA [Suspect]
     Dates: start: 20110208

REACTIONS (6)
  - COLONIC STENOSIS [None]
  - FISTULA [None]
  - DRUG INEFFECTIVE [None]
  - INFLAMMATORY BOWEL DISEASE [None]
  - WEIGHT DECREASED [None]
  - DIARRHOEA [None]
